FAERS Safety Report 14699554 (Version 3)
Quarter: 2018Q2

REPORT INFORMATION
  Report Type: Spontaneous
  Country: US (occurrence: US)
  Receive Date: 20180330
  Receipt Date: 20180417
  Transmission Date: 20180711
  Serious: No
  Sender: FDA-Public Use
  Company Number: US-GLAXOSMITHKLINE-US2018GSK052748

PATIENT
  Sex: Female

DRUGS (13)
  1. BUDESONIDE. [Concomitant]
     Active Substance: BUDESONIDE
  2. SPIRONOLACTONE. [Concomitant]
     Active Substance: SPIRONOLACTONE
  3. VITAMIN D3 [Concomitant]
     Active Substance: CHOLECALCIFEROL
  4. NEXIUM [Concomitant]
     Active Substance: ESOMEPRAZOLE MAGNESIUM
  5. WARFARIN [Concomitant]
     Active Substance: WARFARIN
  6. FUROSEMIDE. [Concomitant]
     Active Substance: FUROSEMIDE
  7. DOXYCYCLINE. [Concomitant]
     Active Substance: DOXYCYCLINE
  8. BROVANA [Concomitant]
     Active Substance: ARFORMOTEROL TARTRATE
  9. VITAMIN B12 [Concomitant]
     Active Substance: CYANOCOBALAMIN
  10. ALBUTEROL NEBULISER SOLUTION [Suspect]
     Active Substance: ALBUTEROL SULFATE
     Indication: PRODUCT USED FOR UNKNOWN INDICATION
  11. BENZOPHENONE [Suspect]
     Active Substance: BENZOPHENONE
     Indication: PRODUCT USED FOR UNKNOWN INDICATION
  12. VENTOLIN HFA [Suspect]
     Active Substance: ALBUTEROL SULFATE
     Indication: CHRONIC OBSTRUCTIVE PULMONARY DISEASE
     Dosage: 1 PUFF(S), PRN
     Route: 055
  13. SPIRIVA [Concomitant]
     Active Substance: TIOTROPIUM BROMIDE MONOHYDRATE

REACTIONS (5)
  - Conjunctivitis [Unknown]
  - Eye disorder [Not Recovered/Not Resolved]
  - Headache [Unknown]
  - Condition aggravated [Unknown]
  - Reaction to excipient [Unknown]
